FAERS Safety Report 20040165 (Version 1)
Quarter: 2021Q4

REPORT INFORMATION
  Report Type: Spontaneous
  Country: GB (occurrence: GB)
  Receive Date: 20211106
  Receipt Date: 20211106
  Transmission Date: 20220304
  Serious: Yes (Other)
  Sender: FDA-Public Use
  Company Number: None

PATIENT
  Age: 25 Year
  Sex: Female

DRUGS (4)
  1. PENICILLIN V [Suspect]
     Active Substance: PENICILLIN V
     Indication: Tonsillitis
     Dosage: 250 MG
     Route: 048
     Dates: start: 20211026
  2. IBUPROFEN [Concomitant]
     Active Substance: IBUPROFEN
     Indication: Ill-defined disorder
     Dosage: UNK
     Route: 065
  3. ACETAMINOPHEN [Concomitant]
     Active Substance: ACETAMINOPHEN
     Indication: Ill-defined disorder
     Dosage: UNK
     Route: 065
  4. SERTRALINE [Concomitant]
     Active Substance: SERTRALINE HYDROCHLORIDE
     Indication: Ill-defined disorder
     Dosage: UNK
     Route: 065

REACTIONS (1)
  - Illness [Not Recovered/Not Resolved]

NARRATIVE: CASE EVENT DATE: 20211030
